FAERS Safety Report 9941442 (Version 2)
Quarter: 2014Q1

REPORT INFORMATION
  Report Type: Report from Study
  Country: US (occurrence: US)
  Receive Date: 20140303
  Receipt Date: 20140303
  Transmission Date: 20141002
  Serious: No
  Sender: FDA-Public Use
  Company Number: US-ABBVIE-12P-163-1020572-00

PATIENT
  Sex: Female

DRUGS (1)
  1. HUMIRA [Suspect]
     Indication: PSORIATIC ARTHROPATHY
     Route: 058
     Dates: start: 201206

REACTIONS (5)
  - Dry skin [Unknown]
  - Rash macular [Unknown]
  - Injection site pruritus [Unknown]
  - Musculoskeletal stiffness [Unknown]
  - Drug ineffective [Unknown]
